FAERS Safety Report 10347838 (Version 4)
Quarter: 2014Q3

REPORT INFORMATION
  Report Type: Report from Study
  Country: US (occurrence: US)
  Receive Date: 20140729
  Receipt Date: 20140823
  Transmission Date: 20150326
  Serious: Yes (Other)
  Sender: FDA-Public Use
  Company Number: US-IPSEN BIOPHARMACEUTICALS, INC.-2013-3353

PATIENT
  Sex: Male
  Weight: 22.8 kg

DRUGS (4)
  1. INCRELEX [Suspect]
     Active Substance: MECASERMIN
     Route: 058
     Dates: start: 20090815, end: 20091201
  2. INCRELEX [Suspect]
     Active Substance: MECASERMIN
     Indication: PRIMARY INSULIN LIKE GROWTH FACTOR-1 DEFICIENCY
     Route: 058
     Dates: start: 20061031, end: 20071106
  3. INCRELEX [Suspect]
     Active Substance: MECASERMIN
     Route: 058
     Dates: start: 20090710
  4. INCRELEX [Suspect]
     Active Substance: MECASERMIN
     Route: 058
     Dates: start: 20080627

REACTIONS (6)
  - Speech disorder [Not Recovered/Not Resolved]
  - Malocclusion [Not Recovered/Not Resolved]
  - Hypoglycaemia [Unknown]
  - Dysmorphism [Not Recovered/Not Resolved]
  - Overdose [Unknown]
  - Jaw disorder [Unknown]
